FAERS Safety Report 5216827-2 (Version None)
Quarter: 2007Q1

REPORT INFORMATION
  Report Type: 
  Country: None (occurrence: None)
  Receive Date: 20070119
  Receipt Date: 20070111
  Transmission Date: 20070707
  Serious: Yes (Other)
  Sender: FDA-Public Use
  Company Number: S06-USA-04824-02

PATIENT
  Sex: Female
  Weight: 2.16 kg

DRUGS (10)
  1. CELEXA [Suspect]
     Dosage: 20 MG QD TRANSPLACENTAL
     Route: 064
     Dates: end: 20050504
  2. VITAMIN AND MINERAL PRENATAL SUPPLEMENT W/ FOLIC ACID CAP [Concomitant]
  3. PROCTOFOAM HC [Concomitant]
  4. ZITHROMAX [Concomitant]
  5. MAGNESIUM SULFATE [Concomitant]
  6. BETAMETHASONE [Concomitant]
  7. PENICILLIN [Concomitant]
  8. INDOCIN [Concomitant]
  9. FENTANYL TRANSDERMAL SYSTEM [Concomitant]
  10. PROCARDIA XL [Concomitant]

REACTIONS (2)
  - DRUG EXPOSURE DURING PREGNANCY [None]
  - PREMATURE BABY [None]
